FAERS Safety Report 7540779-3 (Version None)
Quarter: 2011Q2

REPORT INFORMATION
  Report Type: 
  Country: None (occurrence: None)
  Receive Date: 20110610
  Receipt Date: 20110601
  Transmission Date: 20111010
  Serious: Yes (Other)
  Sender: FDA-Public Use
  Company Number: AU-ROCHE-780352

PATIENT
  Sex: Male

DRUGS (1)
  1. ACTEMRA [Suspect]
     Indication: RHEUMATOID ARTHRITIS
     Route: 042
     Dates: start: 20100915

REACTIONS (3)
  - HYPOAESTHESIA [None]
  - HEART RATE IRREGULAR [None]
  - BLOOD PRESSURE INCREASED [None]
